FAERS Safety Report 4638323-3 (Version None)
Quarter: 2005Q2

REPORT INFORMATION
  Report Type: 
  Country: None (occurrence: None)
  Receive Date: 20050418
  Receipt Date: 20050415
  Transmission Date: 20051028
  Serious: Yes (Other)
  Sender: FDA-Public Use
  Company Number: CH-MERCK-0504CHE00023

PATIENT
  Age: 81 Year
  Sex: Female

DRUGS (9)
  1. FOSAMAX [Suspect]
     Indication: OSTEOPOROSIS
     Route: 048
     Dates: start: 19990101
  2. AMIODARONE HYDROCHLORIDE [Concomitant]
     Indication: ATRIAL FIBRILLATION
     Route: 048
  3. AMIODARONE HYDROCHLORIDE [Concomitant]
     Indication: ATRIAL FLUTTER
     Route: 048
  4. ASPIRIN [Concomitant]
     Indication: EMBOLISM VENOUS
     Route: 048
  5. ASPIRIN [Concomitant]
     Indication: THROMBOSIS
     Route: 048
  6. TORSEMIDE [Concomitant]
     Indication: ESSENTIAL HYPERTENSION
     Route: 048
  7. MIDAZOLAM HYDROCHLORIDE [Concomitant]
     Route: 048
  8. DICLOFENAC SODIUM [Concomitant]
     Route: 048
  9. CODEINE AND ACETAMINOPHEN [Concomitant]
     Route: 048

REACTIONS (3)
  - OSTEITIS [None]
  - OSTEONECROSIS [None]
  - POST PROCEDURAL COMPLICATION [None]
